FAERS Safety Report 7543868-2 (Version None)
Quarter: 2011Q2

REPORT INFORMATION
  Report Type: 
  Country: None (occurrence: None)
  Receive Date: 20110613
  Receipt Date: 20110531
  Transmission Date: 20111010
  Serious: Yes (Death)
  Sender: FDA-Public Use
  Company Number: BE-MYLANLABS-2011S1011480

PATIENT
  Age: 75 Year
  Sex: Female

DRUGS (2)
  1. TRAMADOL HCL [Interacting]
     Indication: OVERDOSE
     Route: 048
  2. FLUOXETINE HCL [Suspect]
     Route: 065

REACTIONS (5)
  - OVERDOSE [None]
  - RESPIRATORY DEPRESSION [None]
  - CARDIAC ARREST [None]
  - DRUG INTERACTION [None]
  - COMPLETED SUICIDE [None]
